FAERS Safety Report 9768325 (Version 2)
Quarter: 2013Q4

REPORT INFORMATION
  Report Type: Report from Study
  Country: JP (occurrence: JP)
  Receive Date: 20131217
  Receipt Date: 20131217
  Transmission Date: 20140711
  Serious: Yes (Life-Threatening)
  Sender: FDA-Public Use
  Company Number: JP-009507513-1204USA01148

PATIENT
  Age: 68 Year
  Sex: Male

DRUGS (7)
  1. ZOLINZA CAPSULES 100MG [Suspect]
     Indication: MYCOSIS FUNGOIDES
     Dosage: 400 MG, QD
     Route: 048
     Dates: start: 20111122, end: 20111226
  2. ZOLINZA CAPSULES 100MG [Suspect]
     Dosage: 300 MG, QD
     Route: 048
     Dates: start: 20111227, end: 20120209
  3. ZOLINZA CAPSULES 100MG [Suspect]
     Dosage: 200 MG, QD
     Route: 048
     Dates: start: 20120210, end: 20120224
  4. TIGASON [Concomitant]
     Indication: MYCOSIS FUNGOIDES
     Dosage: 10 MG, TID
     Route: 048
     Dates: start: 20110425, end: 20111130
  5. CONIEL [Concomitant]
     Indication: HYPERTENSION
     Dosage: 4 MG, QD
     Route: 048
     Dates: start: 20111203
  6. LONGES [Concomitant]
     Indication: HYPERTENSION
     Dosage: 10 MG, QD
     Route: 048
  7. HARNAL [Concomitant]
     Indication: BENIGN PROSTATIC HYPERPLASIA
     Dosage: 0.2 MG, QD
     Route: 048

REACTIONS (3)
  - Haemolytic anaemia [Unknown]
  - Platelet count decreased [Recovered/Resolved]
  - Anaemia [Unknown]
